FAERS Safety Report 6519367-3 (Version None)
Quarter: 2009Q4

REPORT INFORMATION
  Report Type: 
  Country: None (occurrence: None)
  Receive Date: 20091228
  Receipt Date: 20091218
  Transmission Date: 20100525
  Serious: Yes (Other)
  Sender: FDA-Public Use
  Company Number: GXKR2009GB10786

PATIENT
  Age: 50 Year
  Sex: Female
  Weight: 110 kg

DRUGS (5)
  1. METFORMIN (NGX) [Suspect]
     Indication: DIABETES MELLITUS
     Dosage: 500 MG, UNK
     Route: 048
     Dates: start: 20090801, end: 20090821
  2. FERROUS FUMARATE [Concomitant]
     Route: 065
  3. OMEPRAZOLE [Concomitant]
     Route: 065
  4. PIOGLITAZONE [Concomitant]
     Route: 065
  5. SIMVASTATIN [Concomitant]
     Route: 065

REACTIONS (4)
  - PETECHIAE [None]
  - PRURITUS [None]
  - RASH [None]
  - URTICARIA [None]
